FAERS Safety Report 6186737-5 (Version None)
Quarter: 2009Q2

REPORT INFORMATION
  Report Type: 
  Country: None (occurrence: None)
  Receive Date: 20090508
  Receipt Date: 20090427
  Transmission Date: 20091009
  Serious: No
  Sender: FDA-Public Use
  Company Number: 234104K09USA

PATIENT
  Age: 48 Year
  Sex: Male

DRUGS (2)
  1. REBIF [Suspect]
     Indication: MULTIPLE SCLEROSIS
     Dosage: 44 MCG, 3 IN 1 WEEKS, SUBCUTANEOUS
     Route: 058
     Dates: start: 20060314
  2. ANTIDEPRESSANT (ANTIDEPRESSANT) [Concomitant]

REACTIONS (8)
  - BALANCE DISORDER [None]
  - ECONOMIC PROBLEM [None]
  - INJECTION SITE ERYTHEMA [None]
  - INJECTION SITE HAEMATOMA [None]
  - INTERVERTEBRAL DISC DEGENERATION [None]
  - PARTNER STRESS [None]
  - SUICIDAL IDEATION [None]
  - VISUAL FIELD DEFECT [None]
